FAERS Safety Report 15311477 (Version 1)
Quarter: 2018Q3

REPORT INFORMATION
  Report Type: Spontaneous
  Country: BR (occurrence: BR)
  Receive Date: 20180823
  Receipt Date: 20180823
  Transmission Date: 20181010
  Serious: Yes (Other)
  Sender: FDA-Public Use
  Company Number: BR-ABBVIE-18K-020-2456845-00

PATIENT
  Sex: Female
  Weight: 171 kg

DRUGS (6)
  1. ENBREL [Suspect]
     Active Substance: ETANERCEPT
     Indication: PRODUCT USED FOR UNKNOWN INDICATION
     Route: 065
     Dates: start: 2017, end: 2017
  2. HUMIRA [Suspect]
     Active Substance: ADALIMUMAB
     Indication: OSTEOARTHRITIS
     Route: 058
     Dates: start: 201806
  3. PREDSIM [Concomitant]
     Active Substance: PREDNISOLONE
     Indication: PRODUCT USED FOR UNKNOWN INDICATION
  4. HUMIRA [Suspect]
     Active Substance: ADALIMUMAB
     Indication: ARTHRITIS
     Route: 058
     Dates: end: 2017
  5. GLIFAGE [Concomitant]
     Active Substance: METFORMIN HYDROCHLORIDE
     Indication: HYPOGLYCAEMIA
  6. ARAVA [Concomitant]
     Active Substance: LEFLUNOMIDE
     Indication: PRODUCT USED FOR UNKNOWN INDICATION

REACTIONS (13)
  - Post procedural infection [Unknown]
  - Spinal osteoarthritis [Unknown]
  - Malaise [Unknown]
  - Rhinitis [Unknown]
  - Fatigue [Unknown]
  - Drug ineffective [Unknown]
  - Dysstasia [Unknown]
  - Pneumonitis [Unknown]
  - Back disorder [Unknown]
  - Off label use [Unknown]
  - Surgical failure [Unknown]
  - Pneumonia [Unknown]
  - Adverse reaction [Unknown]

NARRATIVE: CASE EVENT DATE: 2017
